FAERS Safety Report 5220967-1 (Version None)
Quarter: 2007Q1

REPORT INFORMATION
  Report Type: 
  Country: None (occurrence: None)
  Receive Date: 20070123
  Receipt Date: 20070109
  Transmission Date: 20070707
  Serious: Yes (Hospitalization)
  Sender: FDA-Public Use
  Company Number: 2007RR-05215

PATIENT
  Age: 28 Year
  Sex: Female
  Weight: 72.6 kg

DRUGS (4)
  1. IBUPROFEN [Suspect]
     Indication: BACK PAIN
     Dosage: 400 MG, ORAL
     Route: 048
     Dates: start: 20061204, end: 20061218
  2. CODEINE PHOSPHATE (CODEINE PHOSPHATE) [Concomitant]
  3. ACETAMINOPHEN [Concomitant]
  4. FLUOXETINE [Concomitant]

REACTIONS (1)
  - DUODENAL ULCER PERFORATION [None]
